FAERS Safety Report 7788512-4 (Version None)
Quarter: 2011Q3

REPORT INFORMATION
  Report Type: 
  Country: None (occurrence: None)
  Receive Date: 20110930
  Receipt Date: 20110927
  Transmission Date: 20111222
  Serious: Yes (Other)
  Sender: FDA-Public Use
  Company Number: PHHY2011US60663

PATIENT
  Sex: Female
  Weight: 101.13 kg

DRUGS (19)
  1. FEXOFENADINE [Concomitant]
     Dosage: 60 MG, UNK
  2. ST. JOHN'S WORT [Concomitant]
     Dosage: 150 MG, UNK
  3. NEURONTIN [Concomitant]
     Indication: TREMOR
     Dosage: 200 MG, TID
     Route: 048
     Dates: start: 20101201
  4. GILENYA [Suspect]
     Indication: RELAPSING-REMITTING MULTIPLE SCLEROSIS
     Dosage: 0.5 MG, QD
     Route: 048
     Dates: start: 20110606, end: 20110811
  5. SELENIUM [Concomitant]
     Dosage: UNK
  6. QUERCETIN [Concomitant]
     Dosage: 250 MG, UNK
  7. FEBIRA [Concomitant]
     Dosage: 0.52 G, UNK
  8. VITAMIN D [Concomitant]
     Dosage: 400 U, UNK
  9. MAGNESIUM [Concomitant]
     Dosage: 300 MG, UNK
  10. IBUPROFEN [Concomitant]
     Dosage: UNK UKN, UNK
  11. VITAMIN D [Concomitant]
     Dosage: 1000 U, UNK
  12. BACLOFEN [Concomitant]
     Dosage: 20 MG, TID
     Route: 048
  13. ARICEPT [Concomitant]
     Indication: COGNITIVE DISORDER
     Dosage: 5 MG, DAILY
     Route: 048
     Dates: start: 20100101
  14. TRIHEXYPHENIDYL HCL [Concomitant]
     Dosage: 2 MG, UNK
  15. AMBIEN [Concomitant]
     Indication: SLEEP DISORDER
     Dosage: 12.5 MG, UNK
     Route: 048
     Dates: start: 20061201
  16. AMITRIPTYLINE HCL [Concomitant]
     Indication: SALIVARY HYPERSECRETION
     Dosage: 25 MG, UNK
     Route: 048
     Dates: start: 20110301
  17. DETROL [Concomitant]
     Indication: INCONTINENCE
     Dosage: 4 MG, DAILY
     Route: 048
     Dates: start: 20110301
  18. PASSION FLOW [Concomitant]
  19. ANTICHOLINERGIC AGENTS [Concomitant]
     Dosage: UNK UKN, UNK

REACTIONS (3)
  - VISION BLURRED [None]
  - DIPLOPIA [None]
  - HYPOTENSION [None]
